FAERS Safety Report 22599920 (Version 1)
Quarter: 2023Q2

REPORT INFORMATION
  Report Type: Spontaneous
  Country: US (occurrence: None)
  Receive Date: 20230613
  Receipt Date: 20230613
  Transmission Date: 20230721
  Serious: Yes (Hospitalization)
  Sender: FDA-Public Use
  Company Number: None

PATIENT
  Sex: Male

DRUGS (4)
  1. HUMIRA [Suspect]
     Active Substance: ADALIMUMAB
     Indication: Crohn^s disease
     Dosage: OTHER QUANTITY : 40 MG/0.4ML;?FREQUENCY : WEEKLY;?
     Route: 058
     Dates: start: 20201110
  2. HUMIRA [Suspect]
     Active Substance: ADALIMUMAB
     Dosage: OTHER QUANTITY : 1 PEN ;?FREQUENCY : WEEKLY;?
     Route: 058
  3. MARINOL [Concomitant]
  4. VIVITROL [Concomitant]

REACTIONS (5)
  - Crohn^s disease [None]
  - Infection [None]
  - Loss of personal independence in daily activities [None]
  - Diarrhoea [None]
  - Abdominal pain [None]
